FAERS Safety Report 23913936 (Version 1)
Quarter: 2024Q2

REPORT INFORMATION
  Report Type: Spontaneous
  Country: JP (occurrence: JP)
  Receive Date: 20240529
  Receipt Date: 20240529
  Transmission Date: 20240715
  Serious: Yes (Other)
  Sender: FDA-Public Use
  Company Number: JP-002147023-NVSJ2024JP006202

PATIENT
  Age: 34 Year

DRUGS (1)
  1. CANAKINUMAB [Suspect]
     Active Substance: CANAKINUMAB
     Indication: Chronic infantile neurological cutaneous and articular syndrome
     Dosage: 300 MG
     Route: 065

REACTIONS (1)
  - Enteritis infectious [Unknown]
